FAERS Safety Report 5788175-3 (Version None)
Quarter: 2008Q2

REPORT INFORMATION
  Report Type: 
  Country: None (occurrence: None)
  Receive Date: 20080625
  Receipt Date: 20080616
  Transmission Date: 20081010
  Serious: Yes (Other)
  Sender: FDA-Public Use
  Company Number: US-SANOFI-SYNTHELABO-A03200801872

PATIENT
  Sex: Female
  Weight: 59 kg

DRUGS (16)
  1. MULTI-VITAMIN [Concomitant]
     Indication: DRUG USE FOR UNKNOWN INDICATION
     Dosage: UNK
     Route: 065
  2. VITAMIN E [Concomitant]
     Indication: FIBROCYSTIC BREAST DISEASE
     Route: 065
  3. XOPENEX [Concomitant]
     Indication: INHALATION THERAPY
     Dosage: UNK
     Route: 065
  4. XOPENEX [Concomitant]
     Indication: BRONCHIAL DISORDER
     Dosage: UNK
     Route: 065
  5. DILTIAZEM [Concomitant]
     Indication: DRUG USE FOR UNKNOWN INDICATION
     Route: 048
     Dates: start: 20070201
  6. TRAZODONE HCL [Concomitant]
     Indication: ANXIETY
     Route: 048
  7. BUSPIRONE HCL [Concomitant]
     Indication: ANXIETY
     Route: 048
  8. PLAVIX [Suspect]
     Indication: CEREBROVASCULAR ACCIDENT
     Route: 048
     Dates: start: 20070207, end: 20080513
  9. TYLENOL [Concomitant]
     Indication: DRUG USE FOR UNKNOWN INDICATION
     Route: 065
  10. ALUPENT INHALER [Concomitant]
     Indication: BRONCHIAL DISORDER
     Dosage: UNK
     Route: 055
  11. METROCREAM [Concomitant]
     Indication: ROSACEA
     Dosage: UNK
     Route: 065
  12. SYSTANE LUBRICANT EYE DROPS [Concomitant]
     Indication: DRY EYE
     Dosage: UNK
     Route: 065
  13. STOOL SOFTENER [Concomitant]
     Indication: CONSTIPATION
     Route: 065
  14. FLAXSEED OIL [Concomitant]
     Indication: BLOOD CHOLESTEROL
     Route: 065
  15. VITAMIN D [Concomitant]
     Indication: OSTEOPENIA
     Route: 065
  16. CALCIUM [Concomitant]
     Indication: OSTEOPENIA
     Route: 065

REACTIONS (4)
  - ASTHMA [None]
  - COUGH [None]
  - DYSPNOEA [None]
  - PRURITUS [None]
